FAERS Safety Report 16826828 (Version 1)
Quarter: 2019Q3

REPORT INFORMATION
  Report Type: Spontaneous
  Country: US (occurrence: US)
  Receive Date: 20190919
  Receipt Date: 20190919
  Transmission Date: 20191005
  Serious: No
  Sender: FDA-Public Use
  Company Number: US-ASTRAZENECA-2019SF24094

PATIENT
  Sex: Male

DRUGS (1)
  1. BYDUREON [Suspect]
     Active Substance: EXENATIDE
     Route: 065
     Dates: start: 2018

REACTIONS (4)
  - Wrong technique in device usage process [Unknown]
  - Injection site haemorrhage [Unknown]
  - Device issue [Unknown]
  - Injection site nodule [Unknown]
